FAERS Safety Report 24555830 (Version 1)
Quarter: 2024Q4

REPORT INFORMATION
  Report Type: Spontaneous
  Country: US (occurrence: None)
  Receive Date: 20241025
  Receipt Date: 20241025
  Transmission Date: 20250114
  Serious: Yes (Death)
  Sender: Public
  Company Number: None

PATIENT
  Age: 75 Year
  Sex: Female

DRUGS (11)
  1. COLLAGENASE SANTYL [Suspect]
     Active Substance: COLLAGENASE CLOSTRIDIUM HISTOLYTICUM
     Indication: Wound
     Dosage: OTHER QUANTITY : SMALL AMOUN GRAM(S) - GM;?FREQUENCY : DAILY;?
     Route: 061
     Dates: start: 20240925
  2. OXYCODONE [Concomitant]
     Active Substance: OXYCODONE
  3. SENNA S [Concomitant]
     Active Substance: DOCUSATE SODIUM\SENNA LEAF
  4. ONDANSETRON [Concomitant]
     Active Substance: ONDANSETRON
  5. NITROGLYCERIN [Concomitant]
     Active Substance: NITROGLYCERIN
  6. GABAPENTIN [Concomitant]
     Active Substance: GABAPENTIN
  7. MIDODRINE [Concomitant]
     Active Substance: MIDODRINE
  8. SODIUM CHLORIDE [Concomitant]
     Active Substance: SODIUM CHLORIDE
  9. DAKINS FULL [Concomitant]
     Active Substance: SODIUM HYPOCHLORITE
  10. MINOCYCLINE [Concomitant]
     Active Substance: MINOCYCLINE HYDROCHLORIDE
  11. VANCOMYCIN [Concomitant]
     Active Substance: VANCOMYCIN

REACTIONS (2)
  - Osteomyelitis [None]
  - Disease complication [None]

NARRATIVE: CASE EVENT DATE: 20241014
